FAERS Safety Report 21241969 (Version 1)
Quarter: 2022Q3

REPORT INFORMATION
  Report Type: Spontaneous
  Country: CN (occurrence: CN)
  Receive Date: 20220823
  Receipt Date: 20220823
  Transmission Date: 20221026
  Serious: Yes (Hospitalization)
  Sender: FDA-Public Use
  Company Number: CN-SUN PHARMACEUTICAL INDUSTRIES LTD-2022R1-349506

PATIENT
  Age: 24 Year
  Sex: Female

DRUGS (4)
  1. HYDROXYCHLOROQUINE [Suspect]
     Active Substance: HYDROXYCHLOROQUINE
     Indication: Panniculitis
     Dosage: 0.2 GRAM, BID
     Route: 065
     Dates: start: 20200628
  2. METHOTREXATE [Suspect]
     Active Substance: METHOTREXATE
     Indication: Panniculitis
     Dosage: 10 MILLIGRAM, WEEKLY
     Route: 065
     Dates: start: 20200628
  3. PREDNISONE [Suspect]
     Active Substance: PREDNISONE
     Indication: Panniculitis
     Dosage: 20 MILLIGRAM, BID
     Route: 048
  4. PREDNISONE [Suspect]
     Active Substance: PREDNISONE
     Dosage: UNK,20MG 8AM AND 15MG 4PM
     Route: 048

REACTIONS (3)
  - Disease recurrence [Unknown]
  - Medication error [Unknown]
  - Haemophagocytic lymphohistiocytosis [Recovering/Resolving]
